FAERS Safety Report 23693297 (Version 1)
Quarter: 2024Q2

REPORT INFORMATION
  Report Type: Spontaneous
  Country: US (occurrence: None)
  Receive Date: 20240401
  Receipt Date: 20240401
  Transmission Date: 20240716
  Serious: No
  Sender: FDA-Public Use
  Company Number: None

PATIENT
  Sex: Male

DRUGS (8)
  1. MYCOPHENOLIC ACID [Suspect]
     Active Substance: MYCOPHENOLIC ACID
     Indication: Renal transplant
     Dosage: FREQUENCY : TWICE A DAY;?
     Route: 048
     Dates: start: 20240307
  2. ATORVASTATIN [Concomitant]
  3. BACTRIM [Concomitant]
     Active Substance: SULFAMETHOXAZOLE\TRIMETHOPRIM
  4. CARVEDILOL [Suspect]
     Active Substance: CARVEDILOL
  5. FAMOTIDINE [Concomitant]
     Active Substance: FAMOTIDINE
  6. PROCARDIA XL [Concomitant]
     Active Substance: NIFEDIPINE
  7. VALCYTE [Concomitant]
     Active Substance: VALGANCICLOVIR HYDROCHLORIDE
  8. VITAMIN A [Concomitant]
     Active Substance: VITAMIN A

REACTIONS (1)
  - Hospitalisation [None]
